FAERS Safety Report 4294977-5 (Version None)
Quarter: 2004Q1

REPORT INFORMATION
  Report Type: 
  Country: None (occurrence: None)
  Receive Date: 20040216
  Receipt Date: 20030402
  Transmission Date: 20041129
  Serious: No
  Sender: FDA-Public Use
  Company Number: US-GLAXOSMITHKLINE-A0403093A

PATIENT
  Age: 16 Year
  Sex: Female

DRUGS (4)
  1. LAMICTAL [Suspect]
     Dosage: 75MG PER DAY
     Route: 048
  2. BIRTH CONTROL [Concomitant]
     Indication: ORAL CONTRACEPTION
     Route: 048
  3. SEROQUEL [Concomitant]
  4. CELEXA [Concomitant]

REACTIONS (3)
  - PAIN [None]
  - PYREXIA [None]
  - RASH [None]
